FAERS Safety Report 8929203 (Version 3)
Quarter: 2012Q4

REPORT INFORMATION
  Report Type: 
  Country: JP (occurrence: JP)
  Receive Date: 20121127
  Receipt Date: 20121221
  Transmission Date: 20130627
  Serious: Yes (Death, Other)
  Sender: FDA-Public Use
  Company Number: PHHY2012JP106316

PATIENT
  Sex: Male

DRUGS (4)
  1. SYMMETREL [Suspect]
     Indication: PARKINSON^S DISEASE
     Dosage: 100 mg daily
     Route: 048
     Dates: start: 2007, end: 20100114
  2. SYMMETREL [Suspect]
     Dosage: 100 mg daily
     Route: 048
     Dates: start: 20100124, end: 20100925
  3. NEODOPASOL [Concomitant]
     Dosage: 300 mg, UNK
     Route: 048
     Dates: start: 20100918
  4. SEROQUEL [Concomitant]
     Dosage: 200 mg, UNK
     Route: 048
     Dates: start: 20100921

REACTIONS (15)
  - Cardio-respiratory arrest [Fatal]
  - Shock [Fatal]
  - Multi-organ failure [Fatal]
  - Corneal degeneration [Not Recovered/Not Resolved]
  - Renal disorder [Not Recovered/Not Resolved]
  - Neuroleptic malignant syndrome [Not Recovered/Not Resolved]
  - Pyrexia [Not Recovered/Not Resolved]
  - Hyperhidrosis [Unknown]
  - Hypertonia [Unknown]
  - Altered state of consciousness [Unknown]
  - Blood creatine phosphokinase increased [Unknown]
  - Muscle rigidity [Unknown]
  - Tremor [Unknown]
  - Delirium [Not Recovered/Not Resolved]
  - Hallucination [Unknown]
